FAERS Safety Report 24847046 (Version 2)
Quarter: 2025Q3

REPORT INFORMATION
  Report Type: Report from Study
  Country: IN (occurrence: IN)
  Receive Date: 20250115
  Receipt Date: 20250803
  Transmission Date: 20251020
  Serious: Yes (Other)
  Sender: ALEXION PHARMACEUTICALS
  Company Number: IN-AstraZeneca-CH-00783563A

PATIENT
  Sex: Female
  Weight: 65 kg

DRUGS (1)
  1. DURVALUMAB [Suspect]
     Active Substance: DURVALUMAB
     Indication: Bile duct cancer

REACTIONS (3)
  - Full blood count decreased [Unknown]
  - Asthenia [Unknown]
  - Feeding disorder [Unknown]
